FAERS Safety Report 19711461 (Version 2)
Quarter: 2021Q3

REPORT INFORMATION
  Report Type: Report from Study
  Country: TH (occurrence: TH)
  Receive Date: 20210817
  Receipt Date: 20210827
  Transmission Date: 20211014
  Serious: Yes (Death, Hospitalization, Other)
  Sender: FDA-Public Use
  Company Number: TH-BAYER-2021-181603

PATIENT
  Sex: Male

DRUGS (3)
  1. STIVARGA [Suspect]
     Active Substance: REGORAFENIB
     Indication: COLORECTAL CANCER
     Dosage: 160 MG DAILY
     Route: 048
     Dates: end: 20210804
  2. STIVARGA [Suspect]
     Active Substance: REGORAFENIB
     Indication: COLORECTAL CANCER
     Dosage: DAILY DOSE 120 MG
     Route: 048
     Dates: start: 20210716
  3. COVID?19 VACCINE [Concomitant]
     Dosage: UNK

REACTIONS (8)
  - Renal failure [Fatal]
  - Immunodeficiency [Fatal]
  - Peripheral swelling [Not Recovered/Not Resolved]
  - Colorectal cancer metastatic [Fatal]
  - Diarrhoea [Recovered/Resolved]
  - Abdominal distension [Not Recovered/Not Resolved]
  - Off label use [None]
  - Asthenia [Fatal]

NARRATIVE: CASE EVENT DATE: 20210716
